FAERS Safety Report 10884762 (Version 1)
Quarter: 2015Q1

REPORT INFORMATION
  Report Type: Spontaneous
  Country: DE (occurrence: None)
  Receive Date: 20150227
  Receipt Date: 20150227
  Transmission Date: 20150721
  Serious: Yes (Hospitalization)
  Sender: FDA-Public Use
  Company Number: FK201500910

PATIENT
  Age: 66 Year
  Sex: Male

DRUGS (1)
  1. CISPLATIN (MANUFACTURER UNKNOWN) (CISPLATIN) (CISPLATIN) [Suspect]
     Active Substance: CISPLATIN
     Indication: TONSIL CANCER

REACTIONS (6)
  - Agitation [None]
  - Suicidal ideation [None]
  - Patient restraint [None]
  - Aggression [None]
  - Abnormal behaviour [None]
  - Cerebral atrophy [None]
